FAERS Safety Report 21833847 (Version 4)
Quarter: 2023Q2

REPORT INFORMATION
  Report Type: Spontaneous
  Country: US (occurrence: US)
  Receive Date: 20230108
  Receipt Date: 20230615
  Transmission Date: 20230722
  Serious: Yes (Hospitalization, Other)
  Sender: FDA-Public Use
  Company Number: US-002147023-NVSC2023US001604

PATIENT
  Age: 34 Year
  Sex: Male
  Weight: 58.4 kg

DRUGS (2)
  1. MEKINIST [Suspect]
     Active Substance: TRAMETINIB DIMETHYL SULFOXIDE
     Indication: Malignant central nervous system neoplasm
     Dosage: 2 MG, QD
     Route: 048
     Dates: start: 202211
  2. MEKINIST [Suspect]
     Active Substance: TRAMETINIB DIMETHYL SULFOXIDE
     Dosage: 2 MG, QD
     Route: 048

REACTIONS (13)
  - Shunt malfunction [Unknown]
  - Visual impairment [Recovering/Resolving]
  - Headache [Unknown]
  - Urinary retention [Unknown]
  - Electrolyte imbalance [Unknown]
  - Asthenia [Unknown]
  - Abdominal discomfort [Unknown]
  - Decreased appetite [Unknown]
  - Myalgia [Unknown]
  - Vomiting [Unknown]
  - Urine analysis abnormal [Unknown]
  - Confusional state [Unknown]
  - Product use in unapproved indication [Unknown]

NARRATIVE: CASE EVENT DATE: 20220801
